FAERS Safety Report 8181379-4 (Version None)
Quarter: 2012Q1

REPORT INFORMATION
  Report Type: 
  Country: None (occurrence: None)
  Receive Date: 20120302
  Receipt Date: 20120227
  Transmission Date: 20120608
  Serious: Yes (Other)
  Sender: FDA-Public Use
  Company Number: US-BAYER-2012-015865

PATIENT
  Age: 23 Year
  Sex: Female
  Weight: 54.422 kg

DRUGS (6)
  1. YAZ [Suspect]
     Dosage: UNK
     Dates: start: 20100523
  2. YAZ [Suspect]
     Indication: PREMENSTRUAL SYNDROME
     Dosage: UNK
     Dates: start: 20081116, end: 20100324
  3. DROSPIRENONE AND ETHINYL ESTRADIOL [Concomitant]
     Dosage: UNK
     Dates: start: 20100701
  4. OGESTREL 0.5/50-21 [Concomitant]
     Indication: CONTRACEPTION
     Dosage: UNK
     Dates: start: 20100422
  5. DROSPIRENONE AND ETHINYL ESTRADIOL [Suspect]
     Indication: PREMENSTRUAL SYNDROME
     Dosage: UNK
     Dates: start: 20080601
  6. ADDERALL 5 [Concomitant]
     Dosage: DAILY
     Dates: start: 20100204, end: 20100224

REACTIONS (6)
  - GALLBLADDER DISORDER [None]
  - ABDOMINAL PAIN [None]
  - PAIN [None]
  - EMOTIONAL DISTRESS [None]
  - PROCEDURAL PAIN [None]
  - INJURY [None]
